FAERS Safety Report 11174048 (Version 1)
Quarter: 2015Q2

REPORT INFORMATION
  Report Type: Spontaneous
  Country: US (occurrence: US)
  Receive Date: 20150609
  Receipt Date: 20150609
  Transmission Date: 20150821
  Serious: Yes (Hospitalization, Other)
  Sender: FDA-Public Use
  Company Number: US-JNJFOC-20150600853

PATIENT
  Age: 63 Year
  Sex: Female
  Weight: 49.9 kg

DRUGS (2)
  1. HALDOL [Suspect]
     Active Substance: HALOPERIDOL
     Indication: PRODUCT USED FOR UNKNOWN INDICATION
     Route: 048
     Dates: start: 198111
  2. LITHIUM. [Suspect]
     Active Substance: LITHIUM
     Indication: PRODUCT USED FOR UNKNOWN INDICATION
     Route: 065
     Dates: start: 198110

REACTIONS (9)
  - Weight increased [Not Recovered/Not Resolved]
  - Abnormal behaviour [Recovered/Resolved]
  - Suppressed lactation [Not Recovered/Not Resolved]
  - Weight decreased [Unknown]
  - Psychotic disorder [Recovered/Resolved]
  - Drug dependence [Not Recovered/Not Resolved]
  - Major depression [Recovered/Resolved]
  - Brain injury [Not Recovered/Not Resolved]
  - Diverticulitis [Unknown]

NARRATIVE: CASE EVENT DATE: 198111
